FAERS Safety Report 21579242 (Version 1)
Quarter: 2022Q4

REPORT INFORMATION
  Report Type: Spontaneous
  Country: US (occurrence: None)
  Receive Date: 20221110
  Receipt Date: 20221110
  Transmission Date: 20230113
  Serious: Yes (Hospitalization)
  Sender: FDA-Public Use
  Company Number: None

PATIENT
  Age: 72 Year
  Sex: Male
  Weight: 67.5 kg

DRUGS (6)
  1. BENAZEPRIL [Suspect]
     Active Substance: BENAZEPRIL HYDROCHLORIDE
     Dates: start: 20220601, end: 20220831
  2. Aspirin chewable tablets [Concomitant]
  3. BENZONATATE [Concomitant]
     Active Substance: BENZONATATE
  4. EVEROLIMUS [Concomitant]
     Active Substance: EVEROLIMUS
  5. TACROLIMUS [Concomitant]
     Active Substance: TACROLIMUS
  6. Tenofovir alefenamide [Concomitant]

REACTIONS (1)
  - Swollen tongue [None]

NARRATIVE: CASE EVENT DATE: 20220831
